FAERS Safety Report 7287137-7 (Version None)
Quarter: 2010Q4

REPORT INFORMATION
  Report Type: 
  Country: None (occurrence: None)
  Receive Date: 20101220
  Receipt Date: 20100916
  Transmission Date: 20110411
  Serious: Yes (Other)
  Sender: FDA-Public Use
  Company Number: US-1183384

PATIENT
  Age: 53 Year
  Sex: Female
  Weight: 72.5755 kg

DRUGS (2)
  1. TRIESENCE [Suspect]
     Indication: CHOROIDAL NEOVASCULARISATION
     Dosage: (INTRAOCULAR)
     Route: 031
  2. TRIESENCE [Suspect]
     Indication: MACULAR DEGENERATION
     Dosage: (INTRAOCULAR)
     Route: 031

REACTIONS (2)
  - EYE PAIN [None]
  - VISION BLURRED [None]
